FAERS Safety Report 10027001 (Version 2)
Quarter: 2014Q1

REPORT INFORMATION
  Report Type: Spontaneous
  Country: JP (occurrence: None)
  Receive Date: 20140318
  Receipt Date: 20140325
  Transmission Date: 20141002
  Serious: Yes (Other)
  Sender: FDA-Public Use
  Company Number: JP-ALSI-201400038

PATIENT
  Age: 15 Day
  Sex: Male
  Weight: 2.9 kg

DRUGS (2)
  1. OXYGEN [Suspect]
     Indication: HYPOXIA
     Dosage: 0.5 L ONCE A MINUTE RESPIRATORY
     Dates: start: 20131110, end: 20131113
  2. OXYGEN [Suspect]
     Indication: HYPOXIA
     Dosage: 2 I ONCE A MINUTE RESPIRATORY
     Dates: start: 20131113, end: 20131119

REACTIONS (4)
  - Pneumocephalus [None]
  - Subcutaneous emphysema [None]
  - Medical device complication [None]
  - Device deployment issue [None]
